FAERS Safety Report 5136732-X (Version None)
Quarter: 2006Q4

REPORT INFORMATION
  Report Type: 
  Country: None (occurrence: None)
  Receive Date: 20061023
  Receipt Date: 20061005
  Transmission Date: 20070319
  Serious: Yes (Other)
  Sender: FDA-Public Use
  Company Number: GXKR2006JP06227

PATIENT
  Age: 70 Year
  Sex: Male

DRUGS (2)
  1. ACETYLSALICYLIC ACID SRT [Suspect]
     Indication: CEREBRAL INFARCTION
     Dosage: 100 MG, QD
     Dates: start: 19940101, end: 20040101
  2. CARVEDILOL [Concomitant]

REACTIONS (2)
  - DERMATITIS EXFOLIATIVE [None]
  - LYMPHOCYTE STIMULATION TEST POSITIVE [None]
